FAERS Safety Report 8327109-4 (Version None)
Quarter: 2012Q2

REPORT INFORMATION
  Report Type: 
  Country: None (occurrence: None)
  Receive Date: 20120501
  Receipt Date: 20120315
  Transmission Date: 20120825
  Serious: Yes (Hospitalization, Other)
  Sender: FDA-Public Use
  Company Number: US-SANOFI-AVENTIS-2012SA018593

PATIENT
  Sex: Male

DRUGS (5)
  1. SOLOSTAR [Suspect]
  2. LANTUS [Suspect]
     Dosage: DOSE:60 UNIT(S)
     Route: 058
  3. SOLOSTAR [Suspect]
  4. APIDRA [Suspect]
     Dosage: DOSE:60 UNIT(S)
     Route: 058
     Dates: start: 20110101, end: 20110101
  5. APIDRA [Suspect]
     Route: 058

REACTIONS (3)
  - RETINOPATHY [None]
  - WRONG DRUG ADMINISTERED [None]
  - HYPOGLYCAEMIA [None]
